FAERS Safety Report 9780708 (Version 1)
Quarter: 2013Q4

REPORT INFORMATION
  Report Type: Spontaneous
  Country: DE (occurrence: DE)
  Receive Date: 20131224
  Receipt Date: 20131224
  Transmission Date: 20140711
  Serious: Yes (Other)
  Sender: FDA-Public Use
  Company Number: PHHY2013DE149140

PATIENT
  Age: 46 Year
  Sex: Male

DRUGS (3)
  1. CICLOSPORIN [Suspect]
     Indication: RENAL TRANSPLANT
  2. TACROLIMUS [Suspect]
     Dosage: 1-2 NG/ML, UNK
  3. BELATACEPT [Concomitant]

REACTIONS (8)
  - Thrombotic microangiopathy [Unknown]
  - Renal impairment [Recovered/Resolved]
  - Blood creatinine increased [Unknown]
  - Renal tubular disorder [Unknown]
  - Toxicity to various agents [Recovered/Resolved]
  - Drug level fluctuating [Unknown]
  - Diarrhoea [Unknown]
  - Oedema [Unknown]
